FAERS Safety Report 8952647 (Version 2)
Quarter: 2013Q1

REPORT INFORMATION
  Report Type: Spontaneous
  Country: DK (occurrence: CA)
  Receive Date: 20121205
  Receipt Date: 20130225
  Transmission Date: 20140127
  Serious: Yes (Other)
  Sender: FDA-Public Use
  Company Number: CA-FRI-1000040808

PATIENT
  Sex: Female

DRUGS (4)
  1. CELEXA [Suspect]
     Indication: DEPRESSION
     Dosage: 40 MG FOR THE PAST 3-4 YEARS UNTIL AWARE OF PREGNANCY
     Route: 064
  2. CELEXA [Suspect]
     Dosage: 20 MG (THROUGHOUT PREGNANCY AND BREASTFEEDING)
     Route: 064
  3. DICLECTIN [Concomitant]
     Indication: NAUSEA
     Dosage: DAILY DOSE NOT REPORTED (STARTED ON THE 12TH WEEK UNTIL THE END OF PREGNANCY)
     Route: 064
  4. LABETALOL [Concomitant]
     Indication: HYPERTENSION
     Dosage: 2 TABLETS TWICE DAILY (STOPPED AFTER BIRTH, WHILE BREASTFEEDING)
     Route: 062

REACTIONS (3)
  - Personality disorder of childhood [Recovered/Resolved]
  - Neonatal disorder [Recovered/Resolved]
  - Exposure during pregnancy [Recovered/Resolved]
